FAERS Safety Report 6347053-1 (Version None)
Quarter: 2009Q3

REPORT INFORMATION
  Report Type: 
  Country: None (occurrence: None)
  Receive Date: 20090909
  Receipt Date: 20090909
  Transmission Date: 20100115
  Serious: Yes (Hospitalization)
  Sender: FDA-Public Use
  Company Number: None

PATIENT
  Age: 27 Year
  Sex: Female
  Weight: 49.8957 kg

DRUGS (2)
  1. YAZ [Suspect]
     Indication: CONTRACEPTION
     Dosage: 1 DAILY PO
     Route: 048
     Dates: start: 20080306, end: 20090831
  2. YAZ [Suspect]
     Indication: OVARIAN CYST
     Dosage: 1 DAILY PO
     Route: 048
     Dates: start: 20080306, end: 20090831

REACTIONS (1)
  - THROMBOSIS [None]
